FAERS Safety Report 9370675 (Version 3)
Quarter: 2014Q1

REPORT INFORMATION
  Report Type: Spontaneous
  Country: US (occurrence: US)
  Receive Date: 20130626
  Receipt Date: 20140124
  Transmission Date: 20141002
  Serious: Yes (Hospitalization)
  Sender: FDA-Public Use
  Company Number: US-B.I. PHARMACEUTICALS,INC./RIDGEFIELD-2013-BI-18227BP

PATIENT
  Age: 69 Year
  Sex: Male
  Weight: 140.16 kg

DRUGS (14)
  1. PRADAXA [Suspect]
     Indication: ANTICOAGULANT THERAPY
     Dosage: 300 MG
     Dates: start: 20110406, end: 20120705
  2. PRADAXA [Suspect]
     Indication: ATRIAL FIBRILLATION
  3. PRADAXA [Suspect]
     Indication: CARDIOVASCULAR EVENT PROPHYLAXIS
  4. AMLODIPINE [Concomitant]
     Dates: start: 2011
  5. ATORVASTATIN [Concomitant]
  6. FUROSEMIDE [Concomitant]
  7. GABAPENTIN [Concomitant]
  8. ISOSORBIDE [Concomitant]
  9. LISINOPRIL-HCTZ [Concomitant]
     Dates: start: 2002, end: 2012
  10. METFORMIN [Concomitant]
  11. NAPROXEN [Concomitant]
  12. POTASSIUM CHLORIDE [Concomitant]
  13. TAMSULOSIN [Concomitant]
  14. ZOLPIDEM [Concomitant]

REACTIONS (3)
  - Upper gastrointestinal haemorrhage [Unknown]
  - Renal failure acute [Unknown]
  - Contusion [Unknown]
